FAERS Safety Report 4556555-X (Version None)
Quarter: 2005Q1

REPORT INFORMATION
  Report Type: 
  Country: None (occurrence: None)
  Receive Date: 20050120
  Receipt Date: 20050106
  Transmission Date: 20050727
  Serious: Yes (Other)
  Sender: FDA-Public Use
  Company Number: PHEH2005US00562

PATIENT
  Age: 57 Year
  Sex: Male

DRUGS (11)
  1. ALLOPURINOL [Concomitant]
     Indication: GOUTY ARTHRITIS
  2. TOPROL-XL [Concomitant]
     Dosage: 25 MG, QD
     Route: 048
  3. WELLBUTRIN [Concomitant]
     Dosage: 300 MG, QD
     Route: 048
  4. ASPIRIN [Suspect]
     Dosage: 325 MG, QD
     Route: 048
  5. POTASSIUM [Concomitant]
     Dosage: 10 MEQ, UNK
     Route: 048
  6. BETACAROTENE [Concomitant]
     Route: 048
  7. VITAMIN C [Concomitant]
     Dosage: UNK, QD
     Route: 048
  8. IRON [Concomitant]
     Dosage: 27 MG, QD
     Route: 048
  9. VITAMIN B COMPLEX CAP [Concomitant]
     Dosage: UNK, QD
     Route: 048
  10. VITAMIN B COMPLEX CAP [Concomitant]
     Dosage: UNK, QD
     Route: 048
  11. GLEEVEC [Suspect]
     Indication: CHRONIC MYELOID LEUKAEMIA
     Dosage: 100 MG, TID
     Route: 048
     Dates: start: 20030701

REACTIONS (6)
  - ANGIOPLASTY [None]
  - CARDIAC PACEMAKER INSERTION [None]
  - DIZZINESS [None]
  - MEMORY IMPAIRMENT [None]
  - SLEEP APNOEA SYNDROME [None]
  - VERTIGO [None]
